FAERS Safety Report 5483906-4 (Version None)
Quarter: 2007Q4

REPORT INFORMATION
  Report Type: 
  Country: None (occurrence: None)
  Receive Date: 20071009
  Receipt Date: 20071009
  Transmission Date: 20080405
  Serious: Yes (Hospitalization)
  Sender: FDA-Public Use
  Company Number: None

PATIENT
  Age: 51 Year
  Sex: Male

DRUGS (7)
  1. LANTUS [Suspect]
     Indication: DIABETES MELLITUS
     Dosage: 38 UNITS DAILY SUBCUT.
     Route: 058
     Dates: start: 20070615
  2. METFORMIN [Concomitant]
  3. GLIPIZIDE [Concomitant]
  4. OMEPRAZOLE [Concomitant]
  5. LISINOPRIL [Concomitant]
  6. ROSUVASTATIN [Concomitant]
  7. ALBUTEROL [Concomitant]

REACTIONS (7)
  - ASTHMA [None]
  - CONDITION AGGRAVATED [None]
  - COUGH [None]
  - LUNG NEOPLASM [None]
  - TUBERCULOSIS [None]
  - TUBERCULOSIS SKIN TEST POSITIVE [None]
  - WEIGHT DECREASED [None]
